FAERS Safety Report 20384470 (Version 1)
Quarter: 2022Q1

REPORT INFORMATION
  Report Type: Spontaneous
  Country: US (occurrence: US)
  Receive Date: 20220127
  Receipt Date: 20220127
  Transmission Date: 20220423
  Serious: Yes (Disabling, Other)
  Sender: FDA-Public Use
  Company Number: US-ALLERGAN-2112945US

PATIENT
  Age: 33 Year
  Sex: Female

DRUGS (3)
  1. BOTOX COSMETIC [Suspect]
     Active Substance: ONABOTULINUMTOXINA
     Indication: Face lift
     Dosage: UNK, SINGLE
     Dates: start: 202103, end: 202103
  2. BOTOX COSMETIC [Suspect]
     Active Substance: ONABOTULINUMTOXINA
     Indication: Eyelid ptosis
     Dosage: UNK, SINGLE
     Dates: start: 202103, end: 202103
  3. BOTOX COSMETIC [Suspect]
     Active Substance: ONABOTULINUMTOXINA
     Dosage: UNK, SINGLE
     Dates: start: 202103, end: 202103

REACTIONS (5)
  - Eyelid ptosis [Not Recovered/Not Resolved]
  - Off label use [Unknown]
  - Brow ptosis [Unknown]
  - Eyelid sensory disorder [Unknown]
  - Eyelid disorder [Not Recovered/Not Resolved]

NARRATIVE: CASE EVENT DATE: 20210301
